FAERS Safety Report 9777777 (Version 2)
Quarter: 2014Q1

REPORT INFORMATION
  Report Type: Spontaneous
  Country: BE (occurrence: BE)
  Receive Date: 20131223
  Receipt Date: 20140203
  Transmission Date: 20141002
  Serious: Yes (Other)
  Sender: FDA-Public Use
  Company Number: BE-ROCHE-1322809

PATIENT
  Sex: Female

DRUGS (2)
  1. LUCENTIS [Suspect]
     Indication: AGE-RELATED MACULAR DEGENERATION
     Dosage: RIGHT EYE
     Route: 050
     Dates: start: 20131125
  2. AMLOR [Concomitant]

REACTIONS (6)
  - Panophthalmitis [Recovering/Resolving]
  - Retinal detachment [Not Recovered/Not Resolved]
  - Retinal ischaemia [Unknown]
  - Eye inflammation [Unknown]
  - Eye pain [Unknown]
  - Visual acuity reduced [Recovering/Resolving]
